FAERS Safety Report 15019634 (Version 1)
Quarter: 2018Q2

REPORT INFORMATION
  Report Type: Spontaneous
  Country: IT (occurrence: IT)
  Receive Date: 20180618
  Receipt Date: 20180618
  Transmission Date: 20180711
  Serious: Yes (Hospitalization)
  Sender: FDA-Public Use
  Company Number: IT-AUROBINDO-AUR-APL-2018-031151

PATIENT
  Age: 76 Year
  Sex: Female

DRUGS (1)
  1. MIRTAZAPINE TABLET 30MG [Suspect]
     Active Substance: MIRTAZAPINE
     Indication: DRUG ABUSE
     Dosage: 420 MILLIGRAM, ONCE A DAY
     Route: 065
     Dates: start: 20180511, end: 20180511

REACTIONS (5)
  - Drug abuse [Recovered/Resolved]
  - Confusional state [Recovered/Resolved]
  - Sopor [Recovered/Resolved]
  - Hypokalaemia [Recovered/Resolved]
  - Dysphagia [Recovered/Resolved]

NARRATIVE: CASE EVENT DATE: 20180512
